FAERS Safety Report 20437100 (Version 1)
Quarter: 2022Q1

REPORT INFORMATION
  Report Type: Spontaneous
  Country: JP (occurrence: JP)
  Receive Date: 20220207
  Receipt Date: 20220207
  Transmission Date: 20220423
  Serious: Yes (Hospitalization, Other)
  Sender: FDA-Public Use
  Company Number: JP-GLAXOSMITHKLINE-JP2022JPN017120

PATIENT
  Age: 39 Year
  Sex: Female
  Weight: 43.2 kg

DRUGS (10)
  1. FLOLAN [Suspect]
     Active Substance: EPOPROSTENOL SODIUM
     Indication: Pulmonary arterial hypertension
     Dosage: 37.5/1,000?
     Route: 042
  2. TADALAFIL [Concomitant]
     Active Substance: TADALAFIL
     Dosage: 10 MG, 1D
     Route: 048
  3. MACITENTAN [Concomitant]
     Active Substance: MACITENTAN
     Dosage: 10 MG, 1D
     Route: 048
  4. RIOCIGUAT [Concomitant]
     Active Substance: RIOCIGUAT
     Dosage: 7.5 MG, 1D
     Route: 048
  5. FUROSEMIDE [Concomitant]
     Active Substance: FUROSEMIDE
     Dosage: 40 MG, 1D
     Route: 048
  6. TRICHLORMETHIAZIDE [Concomitant]
     Active Substance: TRICHLORMETHIAZIDE
     Dosage: 1 MG, 1D
  7. SPIRONOLACTONE [Concomitant]
     Active Substance: SPIRONOLACTONE
     Dosage: 50 MG, 1D
  8. TOLVAPTAN [Concomitant]
     Active Substance: TOLVAPTAN
     Dosage: 15 MG, 1D
     Route: 048
  9. NOREPINEPHRINE [Concomitant]
     Active Substance: NOREPINEPHRINE
     Dosage: UNK, PRN
  10. PHENYLEPHRINE HYDROCHLORIDE [Concomitant]
     Active Substance: PHENYLEPHRINE HYDROCHLORIDE
     Dosage: UNK, PRN

REACTIONS (6)
  - Colon cancer [Recovered/Resolved]
  - Melaena [Unknown]
  - Abnormal faeces [Unknown]
  - Anaemia [Unknown]
  - Hyponatraemia [Unknown]
  - Diarrhoea [Unknown]
